FAERS Safety Report 9500446 (Version 1)
Quarter: 2013Q3

REPORT INFORMATION
  Report Type: Spontaneous
  Country: US (occurrence: None)
  Receive Date: 20130904
  Receipt Date: 20130904
  Transmission Date: 20140515
  Serious: Yes (Hospitalization)
  Sender: FDA-Public Use
  Company Number: None

PATIENT
  Age: 45 Year
  Sex: Male
  Weight: 92.99 kg

DRUGS (3)
  1. MOBIC [Suspect]
     Indication: JOINT INJURY
     Route: 048
     Dates: start: 20130815, end: 20130823
  2. MOBIC [Suspect]
     Indication: INJURY
     Route: 048
     Dates: start: 20130815, end: 20130823
  3. MOBIC [Suspect]
     Indication: EPICONDYLITIS
     Route: 048
     Dates: start: 20130815, end: 20130823

REACTIONS (5)
  - Abdominal pain upper [None]
  - Haematochezia [None]
  - Faeces discoloured [None]
  - Haemorrhage [None]
  - Ulcer [None]
